FAERS Safety Report 8537567-8 (Version None)
Quarter: 2012Q3

REPORT INFORMATION
  Report Type: 
  Country: None (occurrence: None)
  Receive Date: 20120725
  Receipt Date: 20120717
  Transmission Date: 20120928
  Serious: Yes (Hospitalization, Other)
  Sender: FDA-Public Use
  Company Number: JP-VERTEX PHARMACEUTICALS INC.-AE-2012-006054

PATIENT
  Age: 71 Year
  Sex: Male

DRUGS (10)
  1. REBETOL [Concomitant]
     Route: 048
     Dates: start: 20120131, end: 20120320
  2. ZANTAC [Concomitant]
     Route: 048
  3. GLUFAST [Concomitant]
     Route: 048
  4. TELAVIC (TELAPREVIR) [Suspect]
     Route: 048
     Dates: start: 20120301, end: 20120320
  5. TAMIFLU [Concomitant]
     Route: 048
     Dates: start: 20120204, end: 20120209
  6. PEGINTERFERON ALFA-2B [Concomitant]
     Indication: HEPATITIS C
     Route: 058
     Dates: start: 20120117, end: 20120327
  7. TELAVIC (TELAPREVIR) [Suspect]
     Indication: HEPATITIS C
     Route: 048
     Dates: start: 20120117, end: 20120229
  8. REBETOL [Concomitant]
     Indication: HEPATITIS C
     Route: 048
     Dates: start: 20120117, end: 20120130
  9. PRIMPERAN TAB [Concomitant]
     Route: 048
     Dates: start: 20120126
  10. ACETAMINOPHEN [Concomitant]
     Route: 048
     Dates: start: 20120118

REACTIONS (2)
  - PANCREATITIS ACUTE [None]
  - ANAEMIA [None]
